FAERS Safety Report 8783501 (Version 1)
Quarter: 2012Q4

REPORT INFORMATION
  Report Type: 
  Country: JP (occurrence: JP)
  Receive Date: 20120913
  Receipt Date: 20120913
  Transmission Date: 20130627
  Serious: Yes (Other)
  Sender: FDA-Public Use
  Company Number: PHHY2012JP079110

PATIENT
  Age: 73 Year
  Sex: Male

DRUGS (1)
  1. ALLOPURINOL [Suspect]

REACTIONS (7)
  - Roseolovirus test positive [Unknown]
  - Drug reaction with eosinophilia and systemic symptoms [Unknown]
  - Pyrexia [Recovered/Resolved]
  - Dermatitis exfoliative [Recovered/Resolved]
  - Lymphadenopathy [Unknown]
  - Leukocytosis [Unknown]
  - Alanine aminotransferase increased [Unknown]
